FAERS Safety Report 7970359-7 (Version None)
Quarter: 2011Q4

REPORT INFORMATION
  Report Type: 
  Country: None (occurrence: None)
  Receive Date: 20111122
  Receipt Date: 20110719
  Transmission Date: 20120403
  Serious: No
  Sender: FDA-Public Use
  Company Number: PHHY2011US13494

PATIENT
  Sex: Female

DRUGS (1)
  1. GILENYA [Suspect]
     Indication: MULTIPLE SCLEROSIS
     Dosage: 0.5 MG, QD, ORAL
     Route: 048
     Dates: start: 20110126

REACTIONS (5)
  - HYPERTENSION [None]
  - MALAISE [None]
  - ALOPECIA [None]
  - VISUAL IMPAIRMENT [None]
  - FEELING JITTERY [None]
